FAERS Safety Report 8515208-3 (Version None)
Quarter: 2012Q3

REPORT INFORMATION
  Report Type: 
  Country: None (occurrence: None)
  Receive Date: 20120717
  Receipt Date: 20120716
  Transmission Date: 20120928
  Serious: Yes (Hospitalization)
  Sender: FDA-Public Use
  Company Number: DE-GLAXOSMITHKLINE-D0075797A

PATIENT
  Sex: Male
  Weight: 75 kg

DRUGS (1)
  1. DUTASTERIDE/TAMSULOSIN HYDROCHLORIDE [Suspect]
     Route: 048
     Dates: start: 20110705, end: 20120501

REACTIONS (6)
  - CIRCULATORY COLLAPSE [None]
  - ATRIAL FIBRILLATION [None]
  - MUSCULAR WEAKNESS [None]
  - CYANOSIS CENTRAL [None]
  - SYNCOPE [None]
  - BREATH SOUNDS ABNORMAL [None]
